FAERS Safety Report 5209460-X (Version None)
Quarter: 2007Q1

REPORT INFORMATION
  Report Type: 
  Country: None (occurrence: None)
  Receive Date: 20070116
  Receipt Date: 20070108
  Transmission Date: 20070707
  Serious: Yes (Hospitalization)
  Sender: FDA-Public Use
  Company Number: FR-PFIZER INC-2007003065

PATIENT
  Age: 76 Year
  Sex: Female
  Weight: 70 kg

DRUGS (6)
  1. ALDACTONE [Suspect]
     Dosage: DAILY DOSE:25MG
     Route: 048
     Dates: start: 20060831, end: 20060913
  2. LASIX [Suspect]
     Route: 048
     Dates: start: 20060720, end: 20060916
  3. TRIATEC [Suspect]
     Route: 048
     Dates: start: 20060727, end: 20060913
  4. PREVISCAN [Suspect]
     Route: 048
  5. CORDARONE [Suspect]
     Route: 048
     Dates: start: 20060824, end: 20060913
  6. DIFFU K [Suspect]
     Route: 048
     Dates: start: 20060831, end: 20060916

REACTIONS (3)
  - PRURITUS [None]
  - RASH ERYTHEMATOUS [None]
  - RASH MACULO-PAPULAR [None]
